FAERS Safety Report 15684069 (Version 1)
Quarter: 2018Q4

REPORT INFORMATION
  Report Type: Spontaneous
  Country: PT (occurrence: PT)
  Receive Date: 20181204
  Receipt Date: 20181204
  Transmission Date: 20190205
  Serious: Yes (Other)
  Sender: FDA-Public Use
  Company Number: PT-SUN PHARMACEUTICAL INDUSTRIES LTD-2018R1-192523

PATIENT
  Age: 42 Year

DRUGS (1)
  1. CLOZAPINE. [Suspect]
     Active Substance: CLOZAPINE
     Indication: SCHIZOPHRENIA
     Dosage: 600 MILLIGRAM, DAILY
     Route: 065

REACTIONS (7)
  - Respiratory tract infection [Unknown]
  - Ileal perforation [Unknown]
  - Abdominal abscess [Unknown]
  - Dehiscence [Unknown]
  - Intestinal ischaemia [Unknown]
  - Jejunal perforation [Unknown]
  - Pneumoperitoneum [Unknown]
